FAERS Safety Report 4354218-7 (Version None)
Quarter: 2004Q2

REPORT INFORMATION
  Report Type: 
  Country: None (occurrence: None)
  Receive Date: 20040506
  Receipt Date: 20040430
  Transmission Date: 20050107
  Serious: Yes (Hospitalization)
  Sender: FDA-Public Use
  Company Number: ESPFI-S-20030012

PATIENT
  Age: 66 Year
  Sex: Female

DRUGS (2)
  1. NAVELBINE [Suspect]
     Indication: BREAST CANCER
     Dosage: 30MGM2 SEE DOSAGE TEXT
     Route: 042
     Dates: start: 20030321, end: 20030321
  2. GEMCITABINE [Concomitant]
     Dosage: 1200MGM2 SEE DOSAGE TEXT
     Route: 042

REACTIONS (3)
  - PYREXIA [None]
  - RENAL VEIN THROMBOSIS [None]
  - VENA CAVA THROMBOSIS [None]
